FAERS Safety Report 12214578 (Version 1)
Quarter: 2016Q1

REPORT INFORMATION
  Report Type: Report from Study
  Country: BR (occurrence: BR)
  Receive Date: 20160328
  Receipt Date: 20160328
  Transmission Date: 20160526
  Serious: Yes (Hospitalization)
  Sender: FDA-Public Use
  Company Number: BR-UCBSA-2016010741

PATIENT
  Sex: Female
  Weight: 60 kg

DRUGS (4)
  1. METOTREXATE [Concomitant]
     Active Substance: METHOTREXATE SODIUM
     Indication: RHEUMATOID ARTHRITIS
     Dosage: UNK
     Route: 048
     Dates: start: 201602
  2. DIPYRONE [Concomitant]
     Active Substance: DIPYRONE
     Indication: PRODUCT USED FOR UNKNOWN INDICATION
     Dosage: UNK
  3. SULFASALAZINE. [Concomitant]
     Active Substance: SULFASALAZINE
     Indication: PRODUCT USED FOR UNKNOWN INDICATION
     Dosage: UNK
     Route: 048
  4. CERTOLIZUMAB PEGOL [Suspect]
     Active Substance: CERTOLIZUMAB PEGOL
     Indication: RHEUMATOID ARTHRITIS
     Dosage: 200 MG, MONTHLY (QM)
     Dates: start: 20160220

REACTIONS (4)
  - Feeling hot [Unknown]
  - Unevaluable event [Unknown]
  - Alphaviral infection [Recovered/Resolved with Sequelae]
  - Flavivirus infection [Recovered/Resolved with Sequelae]

NARRATIVE: CASE EVENT DATE: 2016
